FAERS Safety Report 7655687-7 (Version None)
Quarter: 2011Q3

REPORT INFORMATION
  Report Type: 
  Country: None (occurrence: None)
  Receive Date: 20110729
  Receipt Date: 20110725
  Transmission Date: 20111222
  Serious: Yes (Death)
  Sender: FDA-Public Use
  Company Number: 201110933

PATIENT
  Age: 63 Year
  Sex: Male

DRUGS (4)
  1. LIORESAL [Suspect]
     Indication: MUSCLE SPASTICITY
     Dosage: MCG, DAILY, INTRATHECAL
     Route: 037
  2. DILAUDID 3 MG/ML [Concomitant]
  3. CLONIDINE 250 MCG/ML [Concomitant]
  4. BUPIVICAINE 30 MG/ML [Concomitant]

REACTIONS (1)
  - RENAL CELL CARCINOMA [None]
